FAERS Safety Report 6390252-3 (Version None)
Quarter: 2009Q4

REPORT INFORMATION
  Report Type: 
  Country: None (occurrence: None)
  Receive Date: 20091003
  Receipt Date: 20090918
  Transmission Date: 20100525
  Serious: Yes (Hospitalization)
  Sender: FDA-Public Use
  Company Number: 8052305

PATIENT
  Age: 45 Year
  Sex: Female
  Weight: 73.9 kg

DRUGS (13)
  1. CIMZIA [Suspect]
     Indication: CROHN'S DISEASE
     Dosage: 400 MG SC
     Route: 058
     Dates: start: 20090601, end: 20090601
  2. CYMBALTA [Concomitant]
  3. LIALDA [Concomitant]
  4. BENTYL [Concomitant]
  5. LYRICA [Concomitant]
  6. AVINZA [Concomitant]
  7. ZANAFLEX [Concomitant]
  8. SEROQUEL [Concomitant]
  9. AMBIEN CR [Concomitant]
  10. PROTONIX /01263301/ [Concomitant]
  11. PROCRIT /00909301/ [Concomitant]
  12. ARIXTRA [Concomitant]
  13. LIDODERM [Concomitant]

REACTIONS (11)
  - BLOOD PRESSURE DECREASED [None]
  - CARDIAC FAILURE CONGESTIVE [None]
  - CLOSTRIDIAL INFECTION [None]
  - DEHYDRATION [None]
  - ESCHERICHIA INFECTION [None]
  - HEPATIC ENZYME INCREASED [None]
  - INCONTINENCE [None]
  - LOBAR PNEUMONIA [None]
  - ORAL MUCOSAL EXFOLIATION [None]
  - PLATELET COUNT DECREASED [None]
  - WEIGHT INCREASED [None]
